FAERS Safety Report 16437587 (Version 1)
Quarter: 2019Q2

REPORT INFORMATION
  Report Type: Report from Study
  Country: AU (occurrence: AU)
  Receive Date: 20190615
  Receipt Date: 20190615
  Transmission Date: 20190711
  Serious: Yes (Other)
  Sender: FDA-Public Use
  Company Number: AU-REGENERON PHARMACEUTICALS, INC.-2019-35863

PATIENT

DRUGS (4)
  1. EYLEA [Suspect]
     Active Substance: AFLIBERCEPT
     Dosage: BOTH EYES (OU), MONTHLY, SOMETIMES TWICE A MONTH IN LEFT EYE (OS)
     Route: 031
     Dates: start: 201902
  2. INSULIN [Concomitant]
     Active Substance: INSULIN NOS
     Indication: PRODUCT USED FOR UNKNOWN INDICATION
     Dosage: UNK
     Dates: start: 2016, end: 201904
  3. EYLEA [Suspect]
     Active Substance: AFLIBERCEPT
     Indication: DIABETIC RETINAL OEDEMA
     Dosage: LEFT EYE (OS)
     Route: 031
     Dates: start: 201802
  4. INSULIN [Concomitant]
     Active Substance: INSULIN NOS
     Dosage: NEW INSULIN
     Dates: start: 201902

REACTIONS (1)
  - Diabetic retinal oedema [Recovering/Resolving]

NARRATIVE: CASE EVENT DATE: 201902
